FAERS Safety Report 6661968-6 (Version None)
Quarter: 2010Q1

REPORT INFORMATION
  Report Type: 
  Country: None (occurrence: None)
  Receive Date: 20100331
  Receipt Date: 20091105
  Transmission Date: 20100710
  Serious: No
  Sender: FDA-Public Use
  Company Number: US-BRISTOL-MYERS SQUIBB COMPANY-14845259

PATIENT
  Age: 48 Year
  Sex: Female
  Weight: 44 kg

DRUGS (9)
  1. ERBITUX [Suspect]
     Indication: HEAD AND NECK CANCER
     Dosage: LAST INF:17AUG09
     Dates: start: 20090622
  2. BENADRYL [Concomitant]
     Indication: PREMEDICATION
  3. DECADRON [Concomitant]
     Indication: PREMEDICATION
     Dates: end: 20090629
  4. KLONOPIN [Concomitant]
  5. VICODIN [Concomitant]
  6. PLAVIX [Concomitant]
  7. ATIVAN [Concomitant]
  8. OXYCODONE [Concomitant]
  9. ASPIRIN [Concomitant]

REACTIONS (3)
  - HALLUCINATION [None]
  - HYPERAESTHESIA [None]
  - RASH [None]
